FAERS Safety Report 26170412 (Version 1)
Quarter: 2025Q4

REPORT INFORMATION
  Report Type: Spontaneous
  Country: US (occurrence: US)
  Receive Date: 20251217
  Receipt Date: 20251217
  Transmission Date: 20260117
  Serious: No
  Sender: ARDELYX
  Company Number: US-ARDELYX-2025ARDX007427

PATIENT
  Sex: Male

DRUGS (3)
  1. XPHOZAH [Suspect]
     Active Substance: TENAPANOR HYDROCHLORIDE
     Indication: Hyperphosphataemia
     Dosage: 20 MG, 3 TABLETS
     Route: 048
     Dates: start: 2025, end: 2025
  2. XPHOZAH [Suspect]
     Active Substance: TENAPANOR HYDROCHLORIDE
     Indication: Chronic kidney disease
     Dosage: 20 MG, QD
     Route: 048
     Dates: start: 2025, end: 202509
  3. SEVELAMER [Concomitant]
     Active Substance: SEVELAMER
     Indication: Product used for unknown indication
     Dosage: UNK
     Route: 065

REACTIONS (4)
  - Diarrhoea [Recovered/Resolved]
  - Sleep disorder [Unknown]
  - Activities of daily living decreased [Unknown]
  - Inappropriate schedule of product administration [Unknown]

NARRATIVE: CASE EVENT DATE: 20250101
